FAERS Safety Report 4719007-X (Version None)
Quarter: 2005Q3

REPORT INFORMATION
  Report Type: 
  Country: None (occurrence: None)
  Receive Date: 20050720
  Receipt Date: 20050705
  Transmission Date: 20060218
  Serious: Yes (Other)
  Sender: FDA-Public Use
  Company Number: JP_050707017

PATIENT
  Age: 60 Year
  Sex: Female

DRUGS (3)
  1. EVISTA [Suspect]
     Indication: OSTEOPOROSIS POSTMENOPAUSAL
     Dosage: 60 MG/1 DAY
     Dates: start: 20040501, end: 20050610
  2. LIPITOR [Concomitant]
  3. PRAVASTATIN [Concomitant]

REACTIONS (2)
  - HYPOAESTHESIA [None]
  - RHABDOMYOLYSIS [None]
